FAERS Safety Report 5305862-1 (Version None)
Quarter: 2007Q2

REPORT INFORMATION
  Report Type: 
  Country: None (occurrence: None)
  Receive Date: 20070424
  Receipt Date: 20070419
  Transmission Date: 20071010
  Serious: Yes (Hospitalization)
  Sender: FDA-Public Use
  Company Number: PHBS2007CA06922

PATIENT
  Age: 80 Year
  Sex: Male

DRUGS (2)
  1. LEVOTHYROXINE SODIUM [Concomitant]
  2. DICLOFENAC [Suspect]

REACTIONS (4)
  - GASTROINTESTINAL HAEMORRHAGE [None]
  - MEDICATION ERROR [None]
  - UPPER GASTROINTESTINAL HAEMORRHAGE [None]
  - WRONG DRUG ADMINISTERED [None]
